FAERS Safety Report 13930200 (Version 1)
Quarter: 2017Q3

REPORT INFORMATION
  Report Type: Spontaneous
  Country: SG (occurrence: SG)
  Receive Date: 20170901
  Receipt Date: 20170901
  Transmission Date: 20171127
  Serious: Yes (Other)
  Sender: FDA-Public Use
  Company Number: SG-IMPAX LABORATORIES, INC-2017-IPXL-02538

PATIENT
  Age: 5 Year
  Sex: Male

DRUGS (7)
  1. DIVALPROEX SODIUM ER [Suspect]
     Active Substance: DIVALPROEX SODIUM
     Indication: EPILEPSY
     Dosage: UNK
     Route: 048
  2. LEVETIRACETAM. [Suspect]
     Active Substance: LEVETIRACETAM
     Dosage: UNK
     Route: 051
  3. DIVALPROEX SODIUM ER [Suspect]
     Active Substance: DIVALPROEX SODIUM
     Dosage: UNK
     Route: 051
  4. CLOBAZAM [Suspect]
     Active Substance: CLOBAZAM
     Indication: EPILEPSY
     Dosage: UNK
     Route: 048
  5. CLOBAZAM [Suspect]
     Active Substance: CLOBAZAM
     Dosage: UNK
     Route: 051
  6. ZONISAMIDE. [Suspect]
     Active Substance: ZONISAMIDE
     Indication: EPILEPSY
     Dosage: UNK
     Route: 048
  7. LEVETIRACETAM. [Suspect]
     Active Substance: LEVETIRACETAM
     Indication: EPILEPSY
     Dosage: UNK
     Route: 048

REACTIONS (3)
  - Drug administered to patient of inappropriate age [Unknown]
  - Hypoglycaemia [Recovered/Resolved]
  - Product use issue [Unknown]
